FAERS Safety Report 7609270-X (Version None)
Quarter: 2011Q3

REPORT INFORMATION
  Report Type: 
  Country: None (occurrence: None)
  Receive Date: 20110713
  Receipt Date: 20110713
  Transmission Date: 20111222
  Serious: Yes (Disabling, Congenital Anomaly, Other)
  Sender: FDA-Public Use
  Company Number: None

PATIENT
  Age: 38 Year
  Sex: Male
  Weight: 120.2032 kg

DRUGS (2)
  1. CIPRO [Suspect]
  2. LEVAQUIN [Suspect]

REACTIONS (30)
  - PARAESTHESIA [None]
  - TINNITUS [None]
  - TREMOR [None]
  - MUSCLE SPASMS [None]
  - ARTHROPATHY [None]
  - PARANOIA [None]
  - DRY EYE [None]
  - TENDON PAIN [None]
  - THROMBOSIS [None]
  - HYPOAESTHESIA [None]
  - COGNITIVE DISORDER [None]
  - ARTHRALGIA [None]
  - CARTILAGE INJURY [None]
  - INSOMNIA [None]
  - MENISCUS LESION [None]
  - FATIGUE [None]
  - FORMICATION [None]
  - NERVOUS SYSTEM DISORDER [None]
  - IMPAIRED WORK ABILITY [None]
  - TENDONITIS [None]
  - ASTHENIA [None]
  - NEUROPATHY PERIPHERAL [None]
  - BURNING SENSATION [None]
  - RHEUMATOID ARTHRITIS [None]
  - CONFUSIONAL STATE [None]
  - PHOTOSENSITIVITY REACTION [None]
  - PAIN IN EXTREMITY [None]
  - DIPLOPIA [None]
  - MYALGIA [None]
  - NEURALGIA [None]
